FAERS Safety Report 13186379 (Version 1)
Quarter: 2017Q1

REPORT INFORMATION
  Report Type: Spontaneous
  Country: EE (occurrence: EE)
  Receive Date: 20170204
  Receipt Date: 20170204
  Transmission Date: 20170428
  Serious: Yes (Other)
  Sender: FDA-Public Use
  Company Number: EE-AMGEN-ESTSP2017004496

PATIENT
  Age: 51 Year
  Sex: Female
  Weight: 85 kg

DRUGS (4)
  1. FASLODEX [Concomitant]
     Active Substance: FULVESTRANT
     Indication: OESTROGEN RECEPTOR POSITIVE BREAST CANCER
     Dosage: 250 MG, QMO
     Dates: start: 20160519, end: 20170126
  2. HOSPIRA DOCETAXEL [Concomitant]
     Indication: BREAST CANCER METASTATIC
     Dosage: 75 MG/M2/KG, Q3WK
     Dates: start: 20151029, end: 20160428
  3. HERCEPTIN [Concomitant]
     Active Substance: TRASTUZUMAB
     Indication: HER-2 POSITIVE BREAST CANCER
     Dosage: 600 MG, Q3WK
     Dates: start: 20140626, end: 20170126
  4. XGEVA [Suspect]
     Active Substance: DENOSUMAB
     Indication: METASTASES TO BONE
     Dosage: 120 MG, QMO
     Route: 058
     Dates: start: 20160303, end: 20160811

REACTIONS (4)
  - Abscess jaw [Recovered/Resolved]
  - Tooth disorder [Unknown]
  - Tooth loss [Unknown]
  - Osteomyelitis [Recovered/Resolved]

NARRATIVE: CASE EVENT DATE: 20170105
